FAERS Safety Report 7285941-2 (Version None)
Quarter: 2011Q1

REPORT INFORMATION
  Report Type: 
  Country: None (occurrence: None)
  Receive Date: 20110210
  Receipt Date: 20110126
  Transmission Date: 20110831
  Serious: Yes (Death, Other)
  Sender: FDA-Public Use
  Company Number: GB-MERCK-1101GBR00119

PATIENT

DRUGS (1)
  1. ISENTRESS [Suspect]
     Route: 048
     Dates: start: 20110104

REACTIONS (2)
  - DEATH [None]
  - ALANINE AMINOTRANSFERASE INCREASED [None]
